FAERS Safety Report 9799717 (Version 2)
Quarter: 2014Q1

REPORT INFORMATION
  Report Type: Spontaneous
  Country: US (occurrence: US)
  Receive Date: 20140106
  Receipt Date: 20140106
  Transmission Date: 20141002
  Serious: Yes (Hospitalization)
  Sender: FDA-Public Use
  Company Number: US-GILEAD-2010-0032755

PATIENT
  Age: 73 Year
  Sex: Male

DRUGS (11)
  1. LETAIRIS [Suspect]
     Indication: PULMONARY ARTERIAL HYPERTENSION
     Route: 048
     Dates: start: 20100923, end: 20100923
  2. WARFARIN [Concomitant]
  3. INDAPAMIDE [Concomitant]
  4. AMLODIPINE [Concomitant]
  5. BYSTOLIC [Concomitant]
  6. DILTIAZEM CD [Concomitant]
  7. HYDRALAZINE [Concomitant]
  8. BENICAR [Concomitant]
  9. LIPITOR [Concomitant]
  10. GLYBURIDE [Concomitant]
  11. METFORMIN [Concomitant]

REACTIONS (2)
  - Local swelling [Recovered/Resolved]
  - Haemoglobin decreased [Recovered/Resolved]
